FAERS Safety Report 5720911-4 (Version None)
Quarter: 2008Q2

REPORT INFORMATION
  Report Type: 
  Country: None (occurrence: None)
  Receive Date: 20080429
  Receipt Date: 20080423
  Transmission Date: 20081010
  Serious: Yes (Hospitalization)
  Sender: FDA-Public Use
  Company Number: JP-AVENTIS-200811357JP

PATIENT
  Age: 85 Year
  Sex: Male

DRUGS (2)
  1. LASIX [Suspect]
     Route: 048
     Dates: end: 20080423
  2. TIENAM [Suspect]
     Dates: end: 20080423

REACTIONS (1)
  - INTERSTITIAL LUNG DISEASE [None]
